FAERS Safety Report 25749891 (Version 1)
Quarter: 2025Q3

REPORT INFORMATION
  Report Type: Spontaneous
  Country: US (occurrence: US)
  Receive Date: 20250902
  Receipt Date: 20250902
  Transmission Date: 20251020
  Serious: Yes (Other)
  Sender: SHILPA MEDICARE
  Company Number: US-KOANAAP-SML-US-2025-00418

PATIENT
  Age: 3 Year
  Sex: Female

DRUGS (7)
  1. IRINOTECAN [Suspect]
     Active Substance: IRINOTECAN
     Indication: Spindle cell sarcoma
  2. VINCRISTINE [Suspect]
     Active Substance: VINCRISTINE
     Indication: Spindle cell sarcoma
  3. DOXORUBICIN [Suspect]
     Active Substance: DOXORUBICIN
     Indication: Spindle cell sarcoma
  4. CYCLOPHOSPHAMIDE [Suspect]
     Active Substance: CYCLOPHOSPHAMIDE
     Indication: Spindle cell sarcoma
  5. IFOSFAMIDE [Suspect]
     Active Substance: IFOSFAMIDE
     Indication: Spindle cell sarcoma
  6. ETOPOSIDE [Suspect]
     Active Substance: ETOPOSIDE
     Indication: Spindle cell sarcoma
  7. ACTINOMYCIN D [Suspect]
     Active Substance: DACTINOMYCIN
     Indication: Spindle cell sarcoma

REACTIONS (3)
  - Metastases to central nervous system [Unknown]
  - Drug ineffective [Unknown]
  - Disease progression [Unknown]
